FAERS Safety Report 5071240-6 (Version None)
Quarter: 2006Q3

REPORT INFORMATION
  Report Type: 
  Country: None (occurrence: None)
  Receive Date: 20060804
  Receipt Date: 20060726
  Transmission Date: 20061208
  Serious: Yes (Other)
  Sender: FDA-Public Use
  Company Number: PHEH2006US09619

PATIENT
  Age: 26 Year
  Sex: Male

DRUGS (1)
  1. RITALIN [Suspect]
     Indication: ATTENTION DEFICIT/HYPERACTIVITY DISORDER
     Route: 048
     Dates: start: 19850101

REACTIONS (3)
  - INFERTILITY MALE [None]
  - SEMEN ABNORMAL [None]
  - SPERMATOGENESIS ABNORMAL [None]
